APPROVED DRUG PRODUCT: FAMOTIDINE
Active Ingredient: FAMOTIDINE
Strength: 40MG
Dosage Form/Route: TABLET;ORAL
Application: A218181 | Product #002 | TE Code: AB
Applicant: RISING PHARMA HOLDINGS INC
Approved: Dec 22, 2023 | RLD: No | RS: No | Type: RX